FAERS Safety Report 5288067-2 (Version None)
Quarter: 2007Q2

REPORT INFORMATION
  Report Type: 
  Country: None (occurrence: None)
  Receive Date: 20070405
  Receipt Date: 20070403
  Transmission Date: 20071010
  Serious: Yes (Disabling)
  Sender: FDA-Public Use
  Company Number: US-BRISTOL-MYERS SQUIBB COMPANY-11718434

PATIENT
  Age: 52 Year
  Sex: Male
  Weight: 91 kg

DRUGS (6)
  1. SERZONE [Suspect]
     Indication: DEPRESSION
     Dosage: PT. USED 100MG,1XDAILY 2 WKS,150MG 1XDAILY FOR 1 WK.VERSION2-DURATION 2-3 WEEKS
     Route: 048
     Dates: start: 20010901
  2. ATENOLOL [Concomitant]
  3. KLONOPIN [Concomitant]
  4. LAMICTAL [Concomitant]
  5. STELAZINE [Concomitant]
  6. ZOCOR [Concomitant]

REACTIONS (2)
  - CYSTITIS INTERSTITIAL [None]
  - PROSTATITIS [None]
